FAERS Safety Report 24226026 (Version 1)
Quarter: 2024Q3

REPORT INFORMATION
  Report Type: Spontaneous
  Country: CA (occurrence: CA)
  Receive Date: 20240820
  Receipt Date: 20240820
  Transmission Date: 20241017
  Serious: Yes (Other)
  Sender: AUROBINDO
  Company Number: CA-AUROBINDO-AUR-APL-2024-040961

PATIENT
  Age: 93 Year

DRUGS (2)
  1. QUETIAPINE [Suspect]
     Active Substance: QUETIAPINE
     Indication: Illusion
     Dosage: UNK
     Route: 065
  2. GALANTAMINE [Suspect]
     Active Substance: GALANTAMINE
     Indication: Illusion
     Dosage: UNK
     Route: 065

REACTIONS (10)
  - Balance disorder [Unknown]
  - Asthma [Unknown]
  - Chest pain [Unknown]
  - Constipation [Unknown]
  - Dizziness [Unknown]
  - Fall [Unknown]
  - Headache [Unknown]
  - Lower respiratory tract infection [Unknown]
  - Transient ischaemic attack [Unknown]
  - Urinary retention [Unknown]
